FAERS Safety Report 10562306 (Version 1)
Quarter: 2014Q4

REPORT INFORMATION
  Report Type: Spontaneous
  Country: IT (occurrence: None)
  Receive Date: 20141031
  Receipt Date: 20141031
  Transmission Date: 20150529
  Serious: Yes (Hospitalization)
  Sender: FDA-Public Use
  Company Number: 2593374

PATIENT
  Age: 66 Year
  Sex: Female

DRUGS (8)
  1. ROACTEMRA [Suspect]
     Active Substance: TOCILIZUMAB
     Indication: RHEUMATOID ARTHRITIS
     Dosage: (NOT OTHERWISE SPECIFIED)
     Route: 042
     Dates: start: 20140313, end: 20140825
  2. METHOTREXATE [Suspect]
     Active Substance: METHOTREXATE
     Indication: RHEUMATOID ARTHRITIS
     Dosage: (NOT OTHERWISE SPECIFIED)
     Route: 042
     Dates: start: 20080101, end: 20140920
  3. TRIATEC /00885601/ [Concomitant]
     Active Substance: RAMIPRIL
  4. CONGESCOR [Concomitant]
     Active Substance: BISOPROLOL
  5. COUMADIN [Concomitant]
     Active Substance: WARFARIN SODIUM
  6. DELTACORTENE [Concomitant]
     Active Substance: PREDNISONE
  7. LANSOX [Concomitant]
     Active Substance: LANSOPRAZOLE
  8. INSULIN [Concomitant]
     Active Substance: INSULIN NOS

REACTIONS (2)
  - Pleurisy [None]
  - Pneumonitis [None]

NARRATIVE: CASE EVENT DATE: 20140927
